FAERS Safety Report 7424675-8 (Version None)
Quarter: 2011Q2

REPORT INFORMATION
  Report Type: 
  Country: None (occurrence: None)
  Receive Date: 20110419
  Receipt Date: 20110411
  Transmission Date: 20111010
  Serious: Yes (Hospitalization, Other)
  Sender: FDA-Public Use
  Company Number: FR-PFIZER INC-2010176356

PATIENT
  Age: 65 Year
  Sex: Male

DRUGS (8)
  1. ZOLOFT [Suspect]
     Indication: GASTRITIS
     Dosage: UNK
     Route: 048
     Dates: start: 20101001, end: 20101216
  2. EUPANTOL [Suspect]
     Dosage: UNK
     Route: 048
     Dates: start: 20101001, end: 20101216
  3. CIPROFLOXACIN [Suspect]
     Dosage: 400 MG A DAY
     Route: 042
     Dates: start: 20101128, end: 20101213
  4. PIPERACILLIN AND TAZOBACTAM [Suspect]
     Dosage: 12 G, UNK
     Route: 042
     Dates: start: 20101128, end: 20101213
  5. CISPLATIN [Concomitant]
     Indication: LUNG NEOPLASM MALIGNANT
     Dosage: UNK
     Dates: start: 20101116
  6. VINORELBINE [Concomitant]
     Indication: LUNG NEOPLASM MALIGNANT
     Dosage: UNK
     Dates: start: 20101116
  7. ZOLOFT [Suspect]
     Indication: GASTRIC ULCER
  8. METRONIDAZOLE [Suspect]
     Indication: DIARRHOEA
     Dosage: 500 MG, UNK
     Route: 042
     Dates: start: 20101204, end: 20101213

REACTIONS (7)
  - AGRANULOCYTOSIS [None]
  - NEUTROPENIA [None]
  - PYREXIA [None]
  - LUNG ADENOCARCINOMA [None]
  - ANAEMIA [None]
  - DIARRHOEA [None]
  - URINARY RETENTION [None]
